FAERS Safety Report 26169178 (Version 1)
Quarter: 2025Q4

REPORT INFORMATION
  Report Type: Spontaneous
  Country: US (occurrence: None)
  Receive Date: 20251216
  Receipt Date: 20251216
  Transmission Date: 20260118
  Serious: Yes (Hospitalization)
  Sender: FDA-CTU
  Company Number: None

PATIENT
  Age: 56 Year
  Sex: Male

DRUGS (14)
  1. TACROLIMUS [Suspect]
     Active Substance: TACROLIMUS
     Indication: Renal transplant
     Dosage: FREQUENCY : TWICE A DAY;
     Route: 048
     Dates: start: 20210713
  2. MELATONIN 1 MG TABLETS [Concomitant]
  3. PREDNISONE [Concomitant]
     Active Substance: PREDNISONE
  4. ACETAMINOPHEN [Concomitant]
     Active Substance: ACETAMINOPHEN
  5. FISH OIL 1000MG CAPSULES [Concomitant]
  6. HUMALOG 100 U/ML KWIK PEN INJ 3ML [Concomitant]
  7. TRESIBA FLEXTOUCH PEN(U-200)INJ 3ML [Concomitant]
  8. VITAMIN D3 1,000 UNIT TABLETS [Concomitant]
  9. AMLODIPINE BESYLATE [Concomitant]
     Active Substance: AMLODIPINE BESYLATE
  10. MYCOPHENOLIC ACID [Concomitant]
     Active Substance: MYCOPHENOLIC ACID
  11. MYCOPHENOLIC ACID [Concomitant]
     Active Substance: MYCOPHENOLIC ACID
  12. CENTRUM SILVER TABLETS [Concomitant]
  13. MAG-OX I DE 400MG TABLET [Concomitant]
  14. Mycophenolic [Concomitant]
     Indication: Renal transplant
     Dosage: FREQUENCY : TWICE A DAY;
     Route: 048
     Dates: start: 20210712

REACTIONS (2)
  - Rotator cuff repair [None]
  - Herpes zoster [None]

NARRATIVE: CASE EVENT DATE: 20251211
